FAERS Safety Report 7352620-2 (Version None)
Quarter: 2011Q1

REPORT INFORMATION
  Report Type: 
  Country: None (occurrence: None)
  Receive Date: 20110315
  Receipt Date: 20110307
  Transmission Date: 20110831
  Serious: Yes (Hospitalization, Other)
  Sender: FDA-Public Use
  Company Number: US-ELI_LILLY_AND_COMPANY-US201012002705

PATIENT
  Sex: Female

DRUGS (8)
  1. FORTEO [Suspect]
     Indication: OSTEOPOROSIS
     Dosage: 20 UG, DAILY (1/D)
     Route: 058
  2. LEVOXYL [Concomitant]
     Dosage: 0.125 MG, UNK
  3. SERTRALINE [Concomitant]
     Dosage: 100 MG, UNK
  4. ASPIRIN [Concomitant]
     Dosage: 81 MG, UNK
  5. PRAVASTATIN [Concomitant]
     Dosage: 40 MG, UNK
  6. FORTEO [Suspect]
     Dosage: 20 UG, DAILY (1/D)
     Dates: end: 20110215
  7. LOSARTAN POTASSIUM AND HYDROCHLOROTHIAZIDE [Concomitant]
  8. TEMAZEPAM [Concomitant]
     Dosage: 30 MG, UNK

REACTIONS (5)
  - WRIST FRACTURE [None]
  - FALL [None]
  - PAIN IN EXTREMITY [None]
  - NASOPHARYNGITIS [None]
  - BLOOD CALCIUM INCREASED [None]
